FAERS Safety Report 19443968 (Version 1)
Quarter: 2021Q2

REPORT INFORMATION
  Report Type: Spontaneous
  Country: CN (occurrence: CN)
  Receive Date: 20210621
  Receipt Date: 20210621
  Transmission Date: 20210717
  Serious: Yes (Other)
  Sender: FDA-Public Use
  Company Number: CN-UCBSA-2021029159

PATIENT
  Age: 32 Year
  Sex: Female
  Weight: 65 kg

DRUGS (7)
  1. GLUTATHIONE [Concomitant]
     Active Substance: GLUTATHIONE
     Indication: PROPHYLAXIS
  2. LEVETIRACETAM. [Suspect]
     Active Substance: LEVETIRACETAM
     Indication: EPILEPSY
     Dosage: .5 GRAM (500MG), 2X/DAY (BID)
     Route: 048
     Dates: start: 20210217
  3. TOPIRAMATE. [Suspect]
     Active Substance: TOPIRAMATE
     Indication: EPILEPSY
     Dosage: 50MG, ONCE DAILY (QD)
     Route: 048
     Dates: start: 20210217, end: 20210314
  4. METHIONINE AND VITAMIN B1 [Concomitant]
     Indication: PROPHYLAXIS
  5. MAGNESIUM ISOGLYCYRRHIZINATE [Concomitant]
     Active Substance: MAGNESIUM ISOGLYCYRRHIZINATE
     Indication: PROPHYLAXIS
  6. LEVETIRACETAM. [Suspect]
     Active Substance: LEVETIRACETAM
     Dosage: .5 GRAM (500MG), 3X/DAY (TID)
     Route: 048
     Dates: end: 20210314
  7. POLYENE PHOSPHATIDYLCHOLINE [Concomitant]
     Active Substance: PHOSPHOLIPID
     Indication: PROPHYLAXIS

REACTIONS (6)
  - Rash [Not Recovered/Not Resolved]
  - Pruritus [Unknown]
  - Liver injury [Recovering/Resolving]
  - Product use issue [Unknown]
  - Rash erythematous [Not Recovered/Not Resolved]
  - Discomfort [Unknown]

NARRATIVE: CASE EVENT DATE: 20210310
